FAERS Safety Report 7537810-8 (Version None)
Quarter: 2011Q2

REPORT INFORMATION
  Report Type: 
  Country: None (occurrence: None)
  Receive Date: 20110603
  Receipt Date: 20110527
  Transmission Date: 20111010
  Serious: Yes (Other)
  Sender: FDA-Public Use
  Company Number: EU-2011-10086

PATIENT
  Age: 86 Year
  Sex: Male

DRUGS (5)
  1. METFORMIN (METFORMIN HYDROCHLORIDE) [Concomitant]
  2. CILOSTAZOL [Suspect]
     Indication: PERIPHERAL ARTERIAL OCCLUSIVE DISEASE
     Dosage: 200 MG MILLIGRAM(S), DAILY DOSE, ORAL
     Route: 048
     Dates: start: 20101201, end: 20110301
  3. ASPIRIN [Concomitant]
  4. TEVETENS (EPROSARTAN MESILATE) [Concomitant]
  5. SITAGLIPTIN (SITAGLIPTIN) [Concomitant]

REACTIONS (3)
  - DIARRHOEA [None]
  - OEDEMA PERIPHERAL [None]
  - WEIGHT DECREASED [None]
